FAERS Safety Report 4599295-3 (Version None)
Quarter: 2005Q1

REPORT INFORMATION
  Report Type: 
  Country: None (occurrence: None)
  Receive Date: 20050305
  Receipt Date: 20050305
  Transmission Date: 20050727
  Serious: Yes (Hospitalization)
  Sender: FDA-Public Use
  Company Number: None

PATIENT
  Age: 54 Year
  Sex: Female
  Weight: 86.1834 kg

DRUGS (12)
  1. TAXOL [Suspect]
     Indication: BREAST CANCER STAGE III
     Dosage: 333MG  ONCE  INTRAVENOUS
     Route: 042
     Dates: start: 20050103, end: 20050118
  2. TYLENOL (CAPLET) [Concomitant]
  3. BENADRYL [Concomitant]
  4. DECADRON [Concomitant]
  5. CIMETIDINE [Concomitant]
  6. ARANESP [Concomitant]
  7. NEULASTA [Concomitant]
  8. ATARAX [Concomitant]
  9. TOPAMAX [Concomitant]
  10. COMPAZINE [Concomitant]
  11. ZOCOR [Concomitant]
  12. SYNTHROID [Concomitant]

REACTIONS (4)
  - CHEST PAIN [None]
  - DYSPNOEA [None]
  - URINARY INCONTINENCE [None]
  - VOMITING [None]
